FAERS Safety Report 5569659-X (Version None)
Quarter: 2007Q4

REPORT INFORMATION
  Report Type: 
  Country: None (occurrence: None)
  Receive Date: 20071220
  Receipt Date: 20071214
  Transmission Date: 20080405
  Serious: Yes (Hospitalization)
  Sender: FDA-Public Use
  Company Number: B0495080A

PATIENT
  Age: 72 Year
  Sex: Female
  Weight: 37 kg

DRUGS (8)
  1. VALTREX [Suspect]
     Indication: HERPES ZOSTER
     Dosage: 1000MG THREE TIMES PER DAY
     Route: 048
     Dates: start: 20071105, end: 20071107
  2. ALDACTONE [Concomitant]
     Indication: HYPERTENSION
     Dosage: 25MG PER DAY
     Route: 048
     Dates: end: 20071107
  3. NU-LOTAN [Concomitant]
     Indication: HYPERTENSION
     Dosage: 50MG PER DAY
     Route: 048
     Dates: end: 20071107
  4. METILDIGOXIN [Concomitant]
     Dosage: .05MG PER DAY
     Route: 048
     Dates: end: 20071107
  5. ALANTA-SP [Concomitant]
     Dosage: 200MG PER DAY
     Route: 048
     Dates: end: 20071107
  6. TRICHLORMETHIAZIDE [Concomitant]
     Indication: HYPERTENSION
     Dosage: 1MG PER DAY
     Route: 048
     Dates: end: 20071107
  7. METHYCOOL [Concomitant]
     Route: 048
     Dates: start: 20071105, end: 20071107
  8. VOLTAREN [Concomitant]
     Indication: HERPES ZOSTER
     Route: 048
     Dates: start: 20071105, end: 20071107

REACTIONS (9)
  - ABNORMAL BEHAVIOUR [None]
  - ALTERED STATE OF CONSCIOUSNESS [None]
  - ANOREXIA [None]
  - HALLUCINATION, VISUAL [None]
  - INSOMNIA [None]
  - METABOLIC ENCEPHALOPATHY [None]
  - NAUSEA [None]
  - NERVOUS SYSTEM DISORDER [None]
  - RENAL FAILURE [None]
